FAERS Safety Report 11658688 (Version 1)
Quarter: 2015Q4

REPORT INFORMATION
  Report Type: Report from Study
  Country: AU (occurrence: AU)
  Receive Date: 20151026
  Receipt Date: 20151026
  Transmission Date: 20160304
  Serious: Yes (Hospitalization, Other)
  Sender: FDA-Public Use
  Company Number: PHHY2015AU136643

PATIENT
  Age: 22 Year
  Sex: Male

DRUGS (2)
  1. PALIPERIDONE [Suspect]
     Active Substance: PALIPERIDONE
     Indication: SCHIZOPHRENIA
     Dosage: 150 MG, QMO
     Route: 065
  2. CLOZARIL [Suspect]
     Active Substance: CLOZAPINE
     Indication: SCHIZOPHRENIA
     Dosage: 500 MG, QD ( 100 MG MORNING AND 40 MG NIGHT)
     Route: 065

REACTIONS (13)
  - Vitamin B12 increased [Unknown]
  - Blood prolactin increased [Unknown]
  - Metabolic syndrome [Unknown]
  - Malaise [Unknown]
  - Chest pain [Recovered/Resolved]
  - Hepatitis C virus test positive [Unknown]
  - Troponin I increased [Unknown]
  - Heart rate increased [Unknown]
  - Alanine aminotransferase increased [Unknown]
  - Gastrooesophageal reflux disease [Unknown]
  - Hypertension [Unknown]
  - Schizophrenia [Unknown]
  - Nausea [Unknown]

NARRATIVE: CASE EVENT DATE: 20100706
